FAERS Safety Report 9204806 (Version 1)
Quarter: 2013Q2

REPORT INFORMATION
  Report Type: Spontaneous
  Country: BR (occurrence: BR)
  Receive Date: 20130402
  Receipt Date: 20130402
  Transmission Date: 20140414
  Serious: Yes (Other)
  Sender: FDA-Public Use
  Company Number: BR-ABBOTT-12P-020-0975965-00

PATIENT
  Age: 31 Year
  Sex: Female
  Weight: 60 kg

DRUGS (10)
  1. SYNTHROID [Suspect]
     Indication: HYPOTHYROIDISM
     Dosage: IN FASTING
     Route: 048
     Dates: start: 2009, end: 20120828
  2. SYNTHROID [Suspect]
  3. PURAN T4 [Concomitant]
     Indication: HYPOTHYROIDISM
     Dosage: 25 MCG
  4. MINERALS NOS W/VITAMINS NOS [Concomitant]
     Indication: PRODUCT USED FOR UNKNOWN INDICATION
  5. MATERNA [Concomitant]
     Indication: PRODUCT USED FOR UNKNOWN INDICATION
  6. FERROUS SULFATE [Concomitant]
     Indication: PRODUCT USED FOR UNKNOWN INDICATION
     Dosage: FROM THE THRID MONTH OF PREGNANCY UNTIL ITS END.
  7. CONTRACEPTIVES [Concomitant]
     Indication: CONTRACEPTION
  8. UNKNOWN DRUG [Concomitant]
     Indication: INFLAMMATION
     Dosage: AFTER DELIVERY
  9. UNKNOWN DRUG [Concomitant]
     Indication: PROPHYLAXIS
  10. UNKNOWN DRUG [Concomitant]
     Indication: INFECTION PROPHYLAXIS

REACTIONS (3)
  - Hypertension [Unknown]
  - Emotional disorder [Unknown]
  - Expired drug administered [Recovered/Resolved]
